FAERS Safety Report 8533776-2 (Version None)
Quarter: 2012Q3

REPORT INFORMATION
  Report Type: 
  Country: None (occurrence: None)
  Receive Date: 20120724
  Receipt Date: 20120716
  Transmission Date: 20120928
  Serious: Yes (Hospitalization, Other)
  Sender: FDA-Public Use
  Company Number: US-ASTRAZENECA-2012SE40378

PATIENT
  Age: 48 Year
  Sex: Female
  Weight: 47.2 kg

DRUGS (3)
  1. LORTAB [Concomitant]
     Indication: PAIN
  2. METFORMIN HYDROCHLORIDE [Concomitant]
  3. NEXIUM [Suspect]
     Indication: GASTROOESOPHAGEAL REFLUX DISEASE
     Route: 048

REACTIONS (6)
  - ULCER [None]
  - PAIN [None]
  - ABDOMINAL PAIN UPPER [None]
  - DRUG DOSE OMISSION [None]
  - ULCER HAEMORRHAGE [None]
  - OFF LABEL USE [None]
